FAERS Safety Report 19130926 (Version 1)
Quarter: 2021Q2

REPORT INFORMATION
  Report Type: Spontaneous
  Country: US (occurrence: US)
  Receive Date: 20210414
  Receipt Date: 20210414
  Transmission Date: 20210717
  Serious: Yes (Other)
  Sender: FDA-Public Use
  Company Number: US-SA-2021SA120054

PATIENT
  Age: 70 Year
  Sex: Female

DRUGS (2)
  1. ZANTAC [Suspect]
     Active Substance: RANITIDINE HYDROCHLORIDE
     Indication: ABDOMINAL DISCOMFORT
     Dosage: 150 MG, QD
     Dates: start: 201512, end: 201808
  2. ZANTAC [Suspect]
     Active Substance: RANITIDINE HYDROCHLORIDE
     Indication: DYSPEPSIA

REACTIONS (5)
  - Tongue carcinoma stage III [Unknown]
  - Lung carcinoma cell type unspecified stage IV [Unknown]
  - Oesophageal carcinoma [Unknown]
  - Lymphoma [Unknown]
  - Injury [Unknown]

NARRATIVE: CASE EVENT DATE: 20190801
